FAERS Safety Report 24403735 (Version 1)
Quarter: 2024Q4

REPORT INFORMATION
  Report Type: Report from Study
  Country: US (occurrence: US)
  Receive Date: 20241007
  Receipt Date: 20241007
  Transmission Date: 20250115
  Serious: No
  Sender: ROCHE
  Company Number: US-ROCHE-3388585

PATIENT
  Age: 70 Year
  Sex: Male

DRUGS (9)
  1. GAZYVA [Suspect]
     Active Substance: OBINUTUZUMAB
     Indication: Product used for unknown indication
     Route: 065
  2. TECENTRIQ [Suspect]
     Active Substance: ATEZOLIZUMAB
     Indication: Product used for unknown indication
     Route: 065
  3. NEXIUM [Suspect]
     Active Substance: ESOMEPRAZOLE MAGNESIUM
     Indication: Product used for unknown indication
     Route: 065
  4. VENCLEXTA [Suspect]
     Active Substance: VENETOCLAX
     Indication: Chronic lymphocytic leukaemia
     Dosage: 4 TABLETS FROM DAY 1 TO 28
     Route: 048
     Dates: start: 2023
  5. VENCLEXTA [Suspect]
     Active Substance: VENETOCLAX
     Route: 048
     Dates: start: 202305, end: 202305
  6. VENCLEXTA [Suspect]
     Active Substance: VENETOCLAX
     Dosage: 4 TABLETS FROM DAY 1 TO 28
     Route: 048
     Dates: start: 202305
  7. VENCLEXTA [Suspect]
     Active Substance: VENETOCLAX
     Route: 048
     Dates: start: 20230607
  8. ALLOPURINOL [Suspect]
     Active Substance: ALLOPURINOL
     Indication: Product used for unknown indication
     Route: 048
     Dates: end: 202310
  9. ALLOPURINOL [Suspect]
     Active Substance: ALLOPURINOL
     Route: 048
     Dates: start: 202310, end: 2023

REACTIONS (30)
  - Blood pressure decreased [Unknown]
  - Platelet count increased [Unknown]
  - Lymphocyte count abnormal [Unknown]
  - Chest discomfort [Unknown]
  - Gastrooesophageal reflux disease [Unknown]
  - Panic attack [Recovering/Resolving]
  - White blood cell count increased [Unknown]
  - Anxiety [Unknown]
  - Low lung compliance [Unknown]
  - Dyspnoea [Unknown]
  - Rash [Unknown]
  - Neutrophil count abnormal [Unknown]
  - Skin wound [Unknown]
  - Nausea [Unknown]
  - Sensation of foreign body [Unknown]
  - Neutrophil count decreased [Unknown]
  - Lymphocyte count decreased [Unknown]
  - White blood cell count decreased [Recovering/Resolving]
  - Platelet count decreased [Recovering/Resolving]
  - Gastrooesophageal reflux disease [Unknown]
  - Seborrhoea [Unknown]
  - Dry skin [Unknown]
  - Hiccups [Unknown]
  - Adverse food reaction [Unknown]
  - Nasopharyngitis [Unknown]
  - Dandruff [Unknown]
  - Dental cleaning [Unknown]
  - Abdominal pain [Unknown]
  - Aortic aneurysm [Unknown]
  - Muscle spasms [Unknown]

NARRATIVE: CASE EVENT DATE: 20230101
